FAERS Safety Report 8296200-3 (Version None)
Quarter: 2012Q2

REPORT INFORMATION
  Report Type: 
  Country: None (occurrence: None)
  Receive Date: 20120418
  Receipt Date: 20120409
  Transmission Date: 20120825
  Serious: Yes (Hospitalization)
  Sender: FDA-Public Use
  Company Number: CO-ELI_LILLY_AND_COMPANY-CO201204003155

PATIENT
  Age: 69 Year
  Sex: Male

DRUGS (5)
  1. METOPROLOL TARTRATE [Concomitant]
     Dosage: UNK
  2. HUMULIN N [Suspect]
     Indication: TYPE 2 DIABETES MELLITUS
     Dosage: 10 U, QD
     Route: 058
     Dates: start: 20090101
  3. FUROSEMIDE [Concomitant]
     Dosage: UNK
  4. FOLIC ACID [Concomitant]
     Dosage: UNK
  5. CARBAMAZEPINE [Concomitant]
     Dosage: UNK

REACTIONS (2)
  - LEG AMPUTATION [None]
  - RASH [None]
